FAERS Safety Report 8235274-2 (Version None)
Quarter: 2012Q1

REPORT INFORMATION
  Report Type: 
  Country: None (occurrence: None)
  Receive Date: 20120326
  Receipt Date: 20120313
  Transmission Date: 20120608
  Serious: Yes (Hospitalization)
  Sender: FDA-Public Use
  Company Number: FR-BRISTOL-MYERS SQUIBB COMPANY-16456048

PATIENT
  Age: 55 Year
  Sex: Female

DRUGS (3)
  1. REYATAZ [Suspect]
     Indication: HIV INFECTION
     Dates: start: 20051122, end: 20120125
  2. TRUVADA [Suspect]
     Indication: HIV INFECTION
     Dates: start: 20051122, end: 20120125
  3. NORVIR [Suspect]
     Indication: HIV INFECTION
     Dates: start: 20051122

REACTIONS (1)
  - RENAL FAILURE ACUTE [None]
